FAERS Safety Report 17635616 (Version 1)
Quarter: 2020Q2

REPORT INFORMATION
  Report Type: Spontaneous
  Country: US (occurrence: US)
  Receive Date: 20200406
  Receipt Date: 20200406
  Transmission Date: 20200713
  Serious: Yes (Other)
  Sender: FDA-Public Use
  Company Number: US-GLAND PHARMA LIMITED-2082414

PATIENT
  Age: 44 Year
  Sex: Female
  Weight: 73 kg

DRUGS (2)
  1. CISPLATIN. [Suspect]
     Active Substance: CISPLATIN
     Indication: FALLOPIAN TUBE CANCER STAGE III
     Route: 042
  2. PACLITAXEL. [Suspect]
     Active Substance: PACLITAXEL
     Route: 033

REACTIONS (4)
  - Abdominal pain [Unknown]
  - Nausea [Unknown]
  - Hypertriglyceridaemia [Recovered/Resolved]
  - Vomiting [Unknown]
